FAERS Safety Report 4836974-4 (Version None)
Quarter: 2005Q4

REPORT INFORMATION
  Report Type: 
  Country: None (occurrence: None)
  Receive Date: 20051121
  Receipt Date: 20051110
  Transmission Date: 20060501
  Serious: Yes (Hospitalization, Other)
  Sender: FDA-Public Use
  Company Number: GXKR2005BR01986

PATIENT
  Age: 54 Year
  Sex: Male

DRUGS (3)
  1. ATENOLOL [Suspect]
     Indication: HYPERTENSION
     Dosage: 100 MG, QD, ORAL
     Route: 048
     Dates: end: 20050329
  2. CAPTOPRIL [Concomitant]
  3. HIGROTON (CHLORTALIDONE) [Concomitant]

REACTIONS (3)
  - BLOOD PRESSURE INCREASED [None]
  - DIABETES MELLITUS [None]
  - HAEMORRHAGIC STROKE [None]
